FAERS Safety Report 16818298 (Version 1)
Quarter: 2019Q3

REPORT INFORMATION
  Report Type: Spontaneous
  Country: US (occurrence: US)
  Receive Date: 20190917
  Receipt Date: 20190917
  Transmission Date: 20191005
  Serious: No
  Sender: FDA-Public Use
  Company Number: US-JNJFOC-20190916082

PATIENT
  Age: 65 Year
  Sex: Female
  Weight: 74.91 kg

DRUGS (1)
  1. STELARA [Suspect]
     Active Substance: USTEKINUMAB
     Indication: PSORIASIS
     Dosage: SECOND INJECTION WAS 24-AUG-2019
     Route: 058
     Dates: start: 201907, end: 20190824

REACTIONS (3)
  - Nausea [Not Recovered/Not Resolved]
  - Incorrect dose administered [Unknown]
  - Off label use [Unknown]

NARRATIVE: CASE EVENT DATE: 201907
